FAERS Safety Report 14841527 (Version 6)
Quarter: 2020Q4

REPORT INFORMATION
  Report Type: Report from Study
  Country: IT (occurrence: IT)
  Receive Date: 20180503
  Receipt Date: 20201012
  Transmission Date: 20210113
  Serious: Yes (Hospitalization)
  Sender: FDA-Public Use
  Company Number: IT-INCYTE CORPORATION-2018IN004123

PATIENT

DRUGS (8)
  1. JAKAVI [Suspect]
     Active Substance: RUXOLITINIB
     Dosage: 10 UNK
     Route: 048
     Dates: start: 20180505, end: 20180708
  2. JAKAVI [Suspect]
     Active Substance: RUXOLITINIB
     Dosage: 20 UNK
     Route: 048
     Dates: start: 20181204
  3. JAKAVI [Suspect]
     Active Substance: RUXOLITINIB
     Dosage: 10 UNK
     Route: 048
     Dates: start: 20180830
  4. JAKAVI [Suspect]
     Active Substance: RUXOLITINIB
     Indication: MYELOFIBROSIS
     Dosage: 15 UNK
     Route: 048
     Dates: start: 20180209, end: 20180228
  5. JAKAVI [Suspect]
     Active Substance: RUXOLITINIB
     Dosage: 30 UNK
     Route: 048
     Dates: start: 20180301, end: 20180504
  6. JAKAVI [Suspect]
     Active Substance: RUXOLITINIB
     Dosage: 10 MG, BID
     Route: 048
  7. JAKAVI [Suspect]
     Active Substance: RUXOLITINIB
     Dosage: 15 UNK
     Route: 048
     Dates: start: 20180709, end: 20180829
  8. JAKAVI [Suspect]
     Active Substance: RUXOLITINIB
     Dosage: 40 MG, QD
     Route: 048
     Dates: start: 20180215

REACTIONS (5)
  - Varices oesophageal [Recovered/Resolved]
  - Anaemia [Unknown]
  - Anaemia [Recovered/Resolved]
  - Cystitis-like symptom [Unknown]
  - Urinary tract infection [Recovered/Resolved]

NARRATIVE: CASE EVENT DATE: 20180417
